FAERS Safety Report 6097919-5 (Version None)
Quarter: 2009Q1

REPORT INFORMATION
  Report Type: 
  Country: None (occurrence: None)
  Receive Date: 20090225
  Receipt Date: 20090211
  Transmission Date: 20090719
  Serious: Yes (Hospitalization)
  Sender: FDA-Public Use
  Company Number: 2009AL000823

PATIENT
  Age: 75 Year
  Sex: Male

DRUGS (7)
  1. METFORMIN HYDROCHLORIDE [Suspect]
     Indication: DIABETES MELLITUS
     Dosage: 850 MG; BID; PO
     Route: 048
  2. FLUDARABINE PHOSPHATE [Concomitant]
  3. CLOPIDOGREL [Concomitant]
  4. MOLSIDOMINE [Concomitant]
  5. ENALAPRIL MALEATE [Concomitant]
  6. ACEBUTOLOL [Concomitant]
  7. WARFARIN SODIUM [Concomitant]

REACTIONS (6)
  - AUTOIMMUNE NEUTROPENIA [None]
  - CONDITION AGGRAVATED [None]
  - DIABETES MELLITUS [None]
  - HEPATOSPLENOMEGALY [None]
  - MYELOID MATURATION ARREST [None]
  - SPLENIC MARGINAL ZONE LYMPHOMA [None]
